FAERS Safety Report 25795776 (Version 1)
Quarter: 2025Q3

REPORT INFORMATION
  Report Type: Spontaneous
  Country: US (occurrence: US)
  Receive Date: 20250912
  Receipt Date: 20250912
  Transmission Date: 20251021
  Serious: No
  Sender: BIOCON
  Company Number: US-MIMS-BCONMC-11239

PATIENT

DRUGS (1)
  1. SEMGLEE (INSULIN GLARGINE-YFGN) [Suspect]
     Active Substance: INSULIN GLARGINE-YFGN
     Indication: Type 2 diabetes mellitus
     Route: 065

REACTIONS (7)
  - Skin odour abnormal [Unknown]
  - Illness [Unknown]
  - Asthenia [Unknown]
  - Dizziness [Unknown]
  - Localised infection [Unknown]
  - Inability to afford medication [Unknown]
  - Product dose omission issue [Unknown]
